FAERS Safety Report 7790469-7 (Version None)
Quarter: 2011Q3

REPORT INFORMATION
  Report Type: 
  Country: None (occurrence: None)
  Receive Date: 20110930
  Receipt Date: 20110922
  Transmission Date: 20111222
  Serious: Yes (Hospitalization)
  Sender: FDA-Public Use
  Company Number: PHHY2011SK84486

PATIENT
  Age: 39 Year
  Sex: Male

DRUGS (2)
  1. RIBAVIRIN [Suspect]
     Indication: HEPATITIS C
     Dosage: 1000 MG, QD
  2. PEGINTERFERON ALFA-2B [Suspect]
     Indication: HEPATITIS C
     Dosage: 1201G ONCE WEEKLY

REACTIONS (15)
  - COAGULOPATHY [None]
  - COELIAC DISEASE [None]
  - ABDOMINAL PAIN [None]
  - HAEMATOMA [None]
  - DIARRHOEA [None]
  - VOMITING [None]
  - HEPATIC ENZYME INCREASED [None]
  - DECREASED APPETITE [None]
  - HYPOPROTEINAEMIA [None]
  - PYREXIA [None]
  - MALNUTRITION [None]
  - WEIGHT DECREASED [None]
  - FATIGUE [None]
  - HYPOKALAEMIA [None]
  - HYPOALBUMINAEMIA [None]
